FAERS Safety Report 9600311 (Version 1)
Quarter: 2013Q4

REPORT INFORMATION
  Report Type: Spontaneous
  Country: US (occurrence: US)
  Receive Date: 20131004
  Receipt Date: 20131004
  Transmission Date: 20140711
  Serious: No
  Sender: FDA-Public Use
  Company Number: US-AMGEN-USASP2013033466

PATIENT
  Age: 57 Year
  Sex: Female
  Weight: 99.77 kg

DRUGS (7)
  1. ENBREL [Suspect]
     Indication: PRODUCT USED FOR UNKNOWN INDICATION
     Dosage: 50 MG, QWK
  2. PRILOSEC                           /00661201/ [Concomitant]
     Dosage: 10 MG, UNK
  3. LEVOTHROID [Concomitant]
     Dosage: 100 MUG, UNK
  4. METFORMIN [Concomitant]
     Dosage: 1000 MG, UNK
  5. CLARITIN                           /00413701/ [Concomitant]
     Dosage: 10 MG, UNK
  6. VITAMIN D                          /00107901/ [Concomitant]
     Dosage: 400 UNIT, UNK
  7. ASMANEX [Concomitant]
     Dosage: 200 MUG, UNK

REACTIONS (1)
  - Therapeutic response decreased [Unknown]
